FAERS Safety Report 7347258-7 (Version None)
Quarter: 2011Q1

REPORT INFORMATION
  Report Type: 
  Country: None (occurrence: None)
  Receive Date: 20110311
  Receipt Date: 20110228
  Transmission Date: 20110831
  Serious: Yes (Death, Hospitalization, Other)
  Sender: FDA-Public Use
  Company Number: US-WATSON-2011-02563

PATIENT
  Sex: Male
  Weight: 79.819 kg

DRUGS (9)
  1. UNKNOWN MEDICATION [Concomitant]
     Indication: DYSPEPSIA
     Dosage: UNK
     Route: 065
  2. FOLIC ACID [Concomitant]
     Indication: VITAMIN SUPPLEMENTATION
     Dosage: UNK
     Route: 065
  3. INSULIN SYRINGE [Concomitant]
     Indication: DIABETES MELLITUS
     Dosage: UNK
     Route: 058
  4. DIAZEPAM [Concomitant]
     Indication: ANXIETY
     Dosage: UNK
     Route: 048
  5. TRIAMCINOLONE [Concomitant]
     Indication: PRODUCT USED FOR UNKNOWN INDICATION
     Dosage: UNK
     Route: 061
  6. UNKNOWN MEDICATION [Concomitant]
     Indication: DEPRESSION
     Dosage: UNK
     Route: 065
  7. PROCET                             /01554201/ [Concomitant]
     Indication: ARTHRITIS
     Dosage: 10/325 MG
     Route: 048
  8. HUMIRA [Suspect]
     Indication: PSORIASIS
     Dosage: 40 MG/0.8ML PEN (40 MG, 1 IN 2 WK)
     Route: 058
     Dates: start: 20101115, end: 20110116
  9. HYDROCODONE BITARTRATE AND ACETAMINOPHEN [Suspect]
     Indication: PAIN
     Dosage: EVERY 8 HOURS AS NEEDED FOR PAIN
     Route: 048

REACTIONS (5)
  - CEREBROVASCULAR ACCIDENT [None]
  - LOSS OF CONSCIOUSNESS [None]
  - URINARY TRACT INFECTION [None]
  - PNEUMONIA [None]
  - BRAIN DEATH [None]
